FAERS Safety Report 7978122-8 (Version None)
Quarter: 2011Q4

REPORT INFORMATION
  Report Type: 
  Country: None (occurrence: None)
  Receive Date: 20111212
  Receipt Date: 20111212
  Transmission Date: 20120403
  Serious: Yes (Other)
  Sender: FDA-Public Use
  Company Number: None

PATIENT
  Age: 30 Year
  Sex: Female
  Weight: 63.4 kg

DRUGS (1)
  1. IPILIMUMAB 3MG/KG BRISTOL MYERS SQUIBB [Suspect]
     Dosage: 784MG TOTAL DOSE RECEIVED EVERY 21 DAYS I.V.
     Route: 042
     Dates: start: 20110906, end: 20111108

REACTIONS (3)
  - VISION BLURRED [None]
  - VISUAL ACUITY REDUCED [None]
  - ANGLE CLOSURE GLAUCOMA [None]
